FAERS Safety Report 13901972 (Version 1)
Quarter: 2017Q3

REPORT INFORMATION
  Report Type: Spontaneous
  Country: US (occurrence: US)
  Receive Date: 20170824
  Receipt Date: 20170824
  Transmission Date: 20171127
  Serious: Yes (Other)
  Sender: FDA-Public Use
  Company Number: US-ROCHE-1130058

PATIENT
  Sex: Female

DRUGS (7)
  1. TAXOTERE [Concomitant]
     Active Substance: DOCETAXEL
  2. DECADRON [Concomitant]
     Active Substance: DEXAMETHASONE
  3. HERCEPTIN [Suspect]
     Active Substance: TRASTUZUMAB
     Indication: BREAST CANCER
     Route: 065
     Dates: start: 19981102
  4. HEPARIN [Concomitant]
     Active Substance: HEPARIN SODIUM
  5. HERCEPTIN [Suspect]
     Active Substance: TRASTUZUMAB
     Route: 065
  6. AREDIA [Concomitant]
     Active Substance: PAMIDRONATE DISODIUM
     Route: 042
  7. TYLENOL [Concomitant]
     Active Substance: ACETAMINOPHEN

REACTIONS (8)
  - Neutropenia [Unknown]
  - Arthralgia [Unknown]
  - Asthenia [Unknown]
  - Nausea [Recovering/Resolving]
  - Myalgia [Unknown]
  - Ejection fraction decreased [Unknown]
  - Vomiting [Recovering/Resolving]
  - Anaemia [Unknown]
